FAERS Safety Report 5840450-X (Version None)
Quarter: 2008Q3

REPORT INFORMATION
  Report Type: 
  Country: None (occurrence: None)
  Receive Date: 20080807
  Receipt Date: 20080807
  Transmission Date: 20090109
  Serious: Yes (Other)
  Sender: FDA-Public Use
  Company Number: None

PATIENT
  Age: 48 Year
  Sex: Male
  Weight: 77.1115 kg

DRUGS (1)
  1. METOPROLOL SUCCINATE [Suspect]
     Indication: ISCHAEMIC HEART DISEASE PROPHYLAXIS
     Dosage: ONE TABLET DAILY PO
     Route: 048
     Dates: start: 20080710, end: 20080731

REACTIONS (5)
  - BLOOD PRESSURE INCREASED [None]
  - PALPITATIONS [None]
  - PHARMACEUTICAL PRODUCT COMPLAINT [None]
  - TACHYCARDIA [None]
  - VENTRICULAR EXTRASYSTOLES [None]
